FAERS Safety Report 10191552 (Version 1)
Quarter: 2014Q2

REPORT INFORMATION
  Report Type: Spontaneous
  Country: ES (occurrence: ES)
  Receive Date: 20140523
  Receipt Date: 20140523
  Transmission Date: 20141212
  Serious: Yes (Life-Threatening, Hospitalization, Other)
  Sender: FDA-Public Use
  Company Number: ES-009507513-1405ESP012019

PATIENT
  Age: 45 Year
  Sex: Female

DRUGS (1)
  1. TRYPTIZOL 10 MG [Suspect]
     Dosage: UNK
     Route: 048
     Dates: start: 20130619, end: 20130619

REACTIONS (3)
  - Coma [Recovered/Resolved]
  - Long QT syndrome [Recovered/Resolved]
  - Intentional overdose [Unknown]
